FAERS Safety Report 9188668 (Version 2)
Quarter: 2013Q4

REPORT INFORMATION
  Report Type: Spontaneous
  Country: GB (occurrence: GB)
  Receive Date: 20130325
  Receipt Date: 20131206
  Transmission Date: 20140711
  Serious: Yes (Death, Other)
  Sender: FDA-Public Use
  Company Number: GB-TEVA-392232ISR

PATIENT
  Age: 48 Year
  Sex: Female

DRUGS (4)
  1. MORPHINE [Suspect]
     Route: 048
  2. FERINJECT [Suspect]
     Indication: IRON DEFICIENCY ANAEMIA
     Route: 041
     Dates: start: 20121127, end: 20130116
  3. LANSOPRAZOLE [Concomitant]
  4. DIHYDROCODEINE [Concomitant]

REACTIONS (8)
  - Thrombocytopenia [Fatal]
  - Aplasia [Fatal]
  - Headache [Unknown]
  - Dizziness [Unknown]
  - Nausea [Unknown]
  - Biopsy bone marrow abnormal [Unknown]
  - Gastrointestinal haemorrhage [Unknown]
  - Vaginal haemorrhage [Unknown]
